FAERS Safety Report 9568476 (Version 1)
Quarter: 2013Q3

REPORT INFORMATION
  Report Type: Spontaneous
  Country: US (occurrence: US)
  Receive Date: 20130930
  Receipt Date: 20130930
  Transmission Date: 20140515
  Serious: No
  Sender: FDA-Public Use
  Company Number: US-AMGEN-USASP2013057892

PATIENT
  Age: 58 Year
  Sex: Male
  Weight: 104.31 kg

DRUGS (8)
  1. ENBREL [Suspect]
     Indication: PRODUCT USED FOR UNKNOWN INDICATION
     Dosage: 50 MG, QWK
     Route: 058
  2. LIPITOR [Concomitant]
     Dosage: 40 MG, UNK
  3. LEXAPRO [Concomitant]
     Dosage: 10 MG, UNK
  4. FISH OIL [Concomitant]
     Dosage: UNK
  5. VITAMIN D                          /00107901/ [Concomitant]
     Dosage: 1000 UNIT, UNK
  6. VITAMIN C                          /00008001/ [Concomitant]
     Dosage: 500 MG, UNK
  7. METHOTREXATE [Concomitant]
     Dosage: 1 G, UNK
  8. FOLIC ACID [Concomitant]
     Dosage: 5 MG/ML, UNK

REACTIONS (1)
  - Sinusitis [Recovered/Resolved]
